FAERS Safety Report 6087166-5 (Version None)
Quarter: 2009Q1

REPORT INFORMATION
  Report Type: 
  Country: None (occurrence: None)
  Receive Date: 20090223
  Receipt Date: 20090212
  Transmission Date: 20090719
  Serious: Yes (Other)
  Sender: FDA-Public Use
  Company Number: GB-MERCK-0902USA02041

PATIENT
  Age: 44 Year
  Sex: Female

DRUGS (1)
  1. NOROXIN [Suspect]
     Route: 048

REACTIONS (3)
  - ACUTE PSYCHOSIS [None]
  - STATUS EPILEPTICUS [None]
  - SUICIDE ATTEMPT [None]
